FAERS Safety Report 8956885 (Version 1)
Quarter: 2012Q4

REPORT INFORMATION
  Report Type: Spontaneous
  Country: GB (occurrence: None)
  Receive Date: 20121128
  Receipt Date: 20121128
  Transmission Date: 20130627
  Serious: Yes (Other)
  Sender: FDA-Public Use
  Company Number: AUR-APL-2012-04941

PATIENT
  Age: 44 Year
  Sex: Female

DRUGS (2)
  1. NAPROXEN (NAPROXEN) [Suspect]
     Indication: ARTHRITIS
     Route: 048
     Dates: start: 2012, end: 20121102
  2. CITALOPRAM (CITALOPRAM) [Concomitant]

REACTIONS (1)
  - Epistaxis [None]
